FAERS Safety Report 16869067 (Version 1)
Quarter: 2019Q3

REPORT INFORMATION
  Report Type: Spontaneous
  Country: AU (occurrence: AU)
  Receive Date: 20190930
  Receipt Date: 20190930
  Transmission Date: 20191005
  Serious: Yes (Other)
  Sender: FDA-Public Use
  Company Number: PHHY2019AU225167

PATIENT
  Age: 63 Year
  Sex: Male

DRUGS (1)
  1. PANTOPRAZOLE [Suspect]
     Active Substance: PANTOPRAZOLE
     Indication: PRODUCT USED FOR UNKNOWN INDICATION
     Route: 065

REACTIONS (6)
  - Large intestine perforation [Recovered/Resolved]
  - Megacolon [Recovered/Resolved]
  - Sepsis [Recovered/Resolved]
  - Colitis ischaemic [Recovered/Resolved]
  - Peritonitis [Recovered/Resolved]
  - Typhoid fever [Recovered/Resolved]
